FAERS Safety Report 20929612 (Version 1)
Quarter: 2022Q2

REPORT INFORMATION
  Report Type: Spontaneous
  Country: JP (occurrence: JP)
  Receive Date: 20220608
  Receipt Date: 20220608
  Transmission Date: 20220721
  Serious: Yes (Other)
  Sender: FDA-Public Use
  Company Number: JP-NOVARTISPH-NVSJ2022JP091685

PATIENT
  Age: 74 Year
  Sex: Female

DRUGS (4)
  1. XYLOCAINE [Suspect]
     Active Substance: LIDOCAINE HYDROCHLORIDE
     Indication: Epidural anaesthesia
     Dosage: 3 ML
     Route: 008
  2. XYLOCAINE [Suspect]
     Active Substance: LIDOCAINE HYDROCHLORIDE
     Dosage: 5 ML
     Route: 058
  3. ANAPEINE [Suspect]
     Active Substance: ROPIVACAINE HYDROCHLORIDE
     Indication: Epidural anaesthesia
     Dosage: 0.25% ANAPEINE 4 ML
     Route: 008
  4. ANAPEINE [Suspect]
     Active Substance: ROPIVACAINE HYDROCHLORIDE
     Dosage: 0.75% ANAPEINE 10 ML
     Route: 030

REACTIONS (5)
  - Seizure [Recovering/Resolving]
  - Pain in extremity [Unknown]
  - Hyperventilation [Recovering/Resolving]
  - Tachycardia [Unknown]
  - Toxicity to various agents [Recovering/Resolving]
